FAERS Safety Report 5104165-8 (Version None)
Quarter: 2006Q3

REPORT INFORMATION
  Report Type: 
  Country: None (occurrence: None)
  Receive Date: 20060911
  Receipt Date: 20060901
  Transmission Date: 20061208
  Serious: Yes (Death)
  Sender: FDA-Public Use
  Company Number: PL-2006-013416

PATIENT
  Age: 46 Year
  Sex: Female

DRUGS (1)
  1. YASMIN [Suspect]
     Indication: ORAL CONTRACEPTION
     Dosage: 1 TAB, ORAL
     Route: 048
     Dates: start: 20050722

REACTIONS (4)
  - PAIN IN EXTREMITY [None]
  - PULMONARY EMBOLISM [None]
  - SUDDEN DEATH [None]
  - SYNCOPE [None]
